FAERS Safety Report 13180309 (Version 1)
Quarter: 2017Q1

REPORT INFORMATION
  Report Type: Spontaneous
  Country: IN (occurrence: IN)
  Receive Date: 20170202
  Receipt Date: 20170202
  Transmission Date: 20170428
  Serious: Yes (Other)
  Sender: FDA-Public Use
  Company Number: IN-FRESENIUS KABI-FK201700891

PATIENT
  Age: 42 Year
  Sex: Female
  Weight: 50 kg

DRUGS (2)
  1. METHOTREXATE (MANUFACTURER UNKNOWN) [Suspect]
     Active Substance: METHOTREXATE
     Indication: LIP AND/OR ORAL CAVITY CANCER
     Route: 065
  2. CISPLATIN (MANUFACTURER UNKNOWN) [Suspect]
     Active Substance: CISPLATIN
     Indication: LIP AND/OR ORAL CAVITY CANCER
     Route: 065

REACTIONS (7)
  - Dyskinesia [Recovered/Resolved]
  - Swelling face [Recovered/Resolved]
  - Blister [Unknown]
  - Diarrhoea [Unknown]
  - Vomiting [Unknown]
  - Pain [Recovered/Resolved]
  - Mastication disorder [Recovered/Resolved]
